FAERS Safety Report 6604231-1 (Version None)
Quarter: 2010Q1

REPORT INFORMATION
  Report Type: 
  Country: None (occurrence: None)
  Receive Date: 20100226
  Receipt Date: 20090720
  Transmission Date: 20100710
  Serious: No
  Sender: FDA-Public Use
  Company Number: A0796869A

PATIENT
  Age: 26 Year
  Sex: Female
  Weight: 54.5 kg

DRUGS (1)
  1. LAMICTAL CD [Suspect]
     Indication: BIPOLAR II DISORDER
     Dosage: 50MG PER DAY
     Route: 048
     Dates: start: 20090601

REACTIONS (3)
  - BONE PAIN [None]
  - MUSCLE SPASMS [None]
  - MUSCULOSKELETAL PAIN [None]
